FAERS Safety Report 4535837-1 (Version None)
Quarter: 2004Q4

REPORT INFORMATION
  Report Type: 
  Country: None (occurrence: None)
  Receive Date: 20041223
  Receipt Date: 20040414
  Transmission Date: 20050328
  Serious: No
  Sender: FDA-Public Use
  Company Number: US-GLAXOSMITHKLINE-A0507182A

PATIENT
  Sex: Female

DRUGS (2)
  1. FLONASE [Suspect]
     Indication: ILL-DEFINED DISORDER
     Route: 045
     Dates: start: 20031001
  2. ADVAIR DISKUS 100/50 [Concomitant]

REACTIONS (2)
  - AGEUSIA [None]
  - ANOSMIA [None]
